FAERS Safety Report 4612834-9 (Version None)
Quarter: 2005Q1

REPORT INFORMATION
  Report Type: 
  Country: None (occurrence: None)
  Receive Date: 20050318
  Receipt Date: 20050304
  Transmission Date: 20050727
  Serious: Yes (Death)
  Sender: FDA-Public Use
  Company Number: JP-JNJFOC-20050301032

PATIENT
  Age: 79 Year
  Sex: Male

DRUGS (8)
  1. OFLOCET [Suspect]
     Indication: DRUG USE FOR UNKNOWN INDICATION
     Route: 042
     Dates: start: 20041230, end: 20050108
  2. ORBENINE [Suspect]
     Indication: DRUG USE FOR UNKNOWN INDICATION
     Route: 042
     Dates: start: 20041230, end: 20050105
  3. TAZOCILLINE [Suspect]
     Route: 042
     Dates: start: 20041226, end: 20050105
  4. TAZOCILLINE [Suspect]
     Indication: DRUG USE FOR UNKNOWN INDICATION
     Route: 042
     Dates: start: 20041226, end: 20050105
  5. TRIFLUCAN [Suspect]
     Indication: DRUG USE FOR UNKNOWN INDICATION
     Route: 042
     Dates: start: 20041226, end: 20050108
  6. PRIMAXIN [Suspect]
     Route: 042
     Dates: start: 20050102, end: 20050106
  7. PRIMAXIN [Suspect]
     Indication: DRUG USE FOR UNKNOWN INDICATION
     Route: 042
     Dates: start: 20050102, end: 20050106
  8. ZYVOXID [Suspect]
     Indication: DRUG USE FOR UNKNOWN INDICATION
     Route: 042
     Dates: start: 20050106, end: 20050117

REACTIONS (11)
  - CARDIO-RESPIRATORY ARREST [None]
  - ENDOCARDITIS [None]
  - HAEMODYNAMIC INSTABILITY [None]
  - HYPOKINESIA [None]
  - HYPOXIA [None]
  - ISCHAEMIC STROKE [None]
  - LYMPHOCYTIC INFILTRATION [None]
  - PACEMAKER COMPLICATION [None]
  - PANCYTOPENIA [None]
  - PULMONARY ALVEOLAR HAEMORRHAGE [None]
  - PULMONARY HAEMORRHAGE [None]
